FAERS Safety Report 10038771 (Version 1)
Quarter: 2014Q1

REPORT INFORMATION
  Report Type: Spontaneous
  Country: US (occurrence: US)
  Receive Date: 20140326
  Receipt Date: 20140326
  Transmission Date: 20141002
  Serious: Yes (Hospitalization)
  Sender: FDA-Public Use
  Company Number: US-LUNDBECK-DKLU1098415

PATIENT
  Age: 10 Month
  Sex: Female

DRUGS (2)
  1. SABRIL (FOR ORAL SOLUTION) [Suspect]
     Indication: EPILEPSY
     Route: 048
     Dates: start: 20140219
  2. SABRIL (FOR ORAL SOLUTION) [Suspect]
     Indication: EPILEPSY

REACTIONS (1)
  - Convulsion [Unknown]
